FAERS Safety Report 7061386-5 (Version None)
Quarter: 2010Q4

REPORT INFORMATION
  Report Type: 
  Country: None (occurrence: None)
  Receive Date: 20101026
  Receipt Date: 20101019
  Transmission Date: 20110411
  Serious: Yes (Hospitalization)
  Sender: FDA-Public Use
  Company Number: PHHY2010JP51546

PATIENT
  Sex: Male
  Weight: 35 kg

DRUGS (10)
  1. ZOMETA [Suspect]
     Indication: BONE LESION
     Dosage: 4 MG PER ADMINISTRATION AT UNSPECIFIED INTERVALS
     Route: 041
     Dates: start: 20070628, end: 20080501
  2. BLOPRESS [Concomitant]
     Indication: HYPERTENSION
     Dosage: 0.5 DF, UNK
     Route: 048
     Dates: start: 20060510, end: 20080616
  3. PREDNISOLONE [Concomitant]
     Indication: MULTIPLE MYELOMA
     Dosage: 4 DF, UNK
     Route: 048
     Dates: start: 20060510, end: 20080401
  4. ADRIACIN [Concomitant]
  5. SIMVASTATIN [Concomitant]
     Indication: HYPERLIPIDAEMIA
     Dosage: 1 DF
     Route: 048
     Dates: start: 20060510, end: 20080616
  6. ALFAROL [Concomitant]
     Indication: OSTEOPOROSIS
     Dosage: 4 DF
     Route: 048
     Dates: start: 20060510
  7. LOXONIN [Concomitant]
     Indication: PAIN
     Dosage: 2 DF
     Route: 048
     Dates: start: 20060510
  8. MUCOSTA [Concomitant]
     Indication: GASTRITIS
     Dosage: 3 DF, UNK
     Route: 048
     Dates: start: 20060510
  9. ALKERAN [Concomitant]
     Indication: MULTIPLE MYELOMA
     Dosage: 4 DF
     Route: 048
     Dates: start: 20060510, end: 20080401
  10. NORVASC [Concomitant]
     Indication: HYPERTENSION
     Dosage: 1 DF, UNK
     Route: 048
     Dates: start: 20060510, end: 20080616

REACTIONS (2)
  - INFECTION [None]
  - OSTEONECROSIS OF JAW [None]
